FAERS Safety Report 8790206 (Version 2)
Quarter: 2012Q4

REPORT INFORMATION
  Report Type: 
  Country: US (occurrence: US)
  Receive Date: 20120917
  Receipt Date: 20121027
  Transmission Date: 20130627
  Serious: No
  Sender: FDA-Public Use
  Company Number: US-ROXANE LABORATORIES, INC.-2012-RO-01755RO

PATIENT
  Age: 44 Year
  Sex: Female
  Weight: 139 kg

DRUGS (1)
  1. CODEINE SULFATE [Suspect]

REACTIONS (4)
  - Drug hypersensitivity [Unknown]
  - Pruritus [Unknown]
  - Formication [Unknown]
  - Insomnia [Unknown]
